FAERS Safety Report 21575450 (Version 3)
Quarter: 2022Q4

REPORT INFORMATION
  Report Type: Report from Study
  Country: US (occurrence: None)
  Receive Date: 20221110
  Receipt Date: 20221216
  Transmission Date: 20230113
  Serious: Yes (Hospitalization)
  Sender: FDA-Public Use
  Company Number: US-ROCHE-3215121

PATIENT
  Age: 60 Year
  Sex: Male

DRUGS (6)
  1. FARICIMAB [Suspect]
     Active Substance: FARICIMAB
     Indication: Diabetic retinal oedema
     Dosage: DOSE LAST STUDY DRUG ADMIN PRIOR SAE 6 MG?START DATE OF MOST RECENT DOSE OF STUDY DRUG PRIOR TO AE 2
     Route: 050
     Dates: start: 20210429
  2. FARICIMAB [Suspect]
     Active Substance: FARICIMAB
     Dosage: DOSE LAST STUDY DRUG ADMIN PRIOR SAE 6 MG?START DATE OF MOST RECENT DOSE OF STUDY DRUG PRIOR TO SAE/
     Route: 050
  3. RANIBIZUMAB [Suspect]
     Active Substance: RANIBIZUMAB
     Indication: Diabetic retinal oedema
     Route: 065
     Dates: start: 20210429
  4. METFORMIN [Concomitant]
     Active Substance: METFORMIN HYDROCHLORIDE
     Indication: Diabetes mellitus
     Dates: start: 20190517
  5. BACITRACIN ZINC;NEOMYCIN SULFATE;POLYMYXIN B SULFATE [Concomitant]
     Route: 061
     Dates: start: 20210725, end: 20221209
  6. GLIPIZIDE [Concomitant]
     Active Substance: GLIPIZIDE
     Indication: Diabetes mellitus
     Route: 048
     Dates: start: 201706

REACTIONS (1)
  - Osteomyelitis [Recovered/Resolved]

NARRATIVE: CASE EVENT DATE: 20221027
